FAERS Safety Report 22782227 (Version 2)
Quarter: 2025Q3

REPORT INFORMATION
  Report Type: Report from Study
  Country: EG (occurrence: EG)
  Receive Date: 20230803
  Receipt Date: 20250822
  Transmission Date: 20251020
  Serious: Yes (Life-Threatening, Hospitalization, Other)
  Sender: NOVARTIS
  Company Number: EG-002147023-NVSC2023EG168399

PATIENT
  Sex: Male

DRUGS (10)
  1. ENTRESTO [Suspect]
     Active Substance: SACUBITRIL\VALSARTAN
     Indication: Heart failure with reduced ejection fraction
     Dosage: 50 MG, BID
     Route: 048
     Dates: start: 202103, end: 202211
  2. ENTRESTO [Suspect]
     Active Substance: SACUBITRIL\VALSARTAN
     Dosage: 50 MG, BID
     Route: 048
     Dates: start: 202307
  3. Gast-reg [Concomitant]
     Indication: Gastrointestinal disorder
     Dosage: 1 DOSAGE FORM, BID
     Route: 065
  4. TORSEMIDE [Concomitant]
     Active Substance: TORSEMIDE
     Indication: Polyuria
     Dosage: 1 DOSAGE FORM, QD ((AS PER PATIENT^S WORDS SOMETIMES  ONE TABLET TWICE) OR ONCE DAILY)
     Route: 065
  5. Agiolax [Concomitant]
     Indication: Colon injury
     Dosage: 1 DOSAGE FORM, BID (1 SACHET)
     Route: 065
     Dates: start: 202306
  6. NEUROBION [Concomitant]
     Active Substance: CYANOCOBALAMIN\PYRIDOXINE\THIAMINE
     Indication: Vitamin supplementation
     Dosage: 1 DOSAGE FORM, BID (STARTED 1 WEEK AGO)
     Route: 065
  7. OSTEOCARE [Concomitant]
     Active Substance: CALCIUM\CHOLECALCIFEROL\MAGNESIUM\ZINC
     Indication: Product used for unknown indication
     Route: 065
  8. Potassium m [Concomitant]
     Indication: Mineral supplementation
     Route: 065
  9. DAPAGLIFLOZIN [Concomitant]
     Active Substance: DAPAGLIFLOZIN
     Indication: Diabetes mellitus
     Dosage: 1 DOSAGE FORM, QD (STARTED LONGTIME AGO)
     Route: 065
  10. ASPIRIN [Concomitant]
     Active Substance: ASPIRIN
     Indication: Anticoagulant therapy
     Dosage: 1 DOSAGE FORM, QD (STARTED LONG TIME AGO)
     Route: 065

REACTIONS (16)
  - Pulmonary oedema [Recovered/Resolved]
  - Dyspnoea [Recovered/Resolved]
  - Myocardial oedema [Recovered/Resolved]
  - Effusion [Recovered/Resolved]
  - Ejection fraction decreased [Recovering/Resolving]
  - Lethargy [Recovered/Resolved]
  - Malnutrition [Recovered/Resolved]
  - Decreased appetite [Recovered/Resolved]
  - Hypotension [Recovering/Resolving]
  - Blood potassium decreased [Unknown]
  - Blood creatinine decreased [Unknown]
  - Brain natriuretic peptide increased [Unknown]
  - Vitamin B12 deficiency [Unknown]
  - Speech disorder [Recovered/Resolved]
  - Muscle atrophy [Recovering/Resolving]
  - Mobility decreased [Recovering/Resolving]

NARRATIVE: CASE EVENT DATE: 20220101
